FAERS Safety Report 17330810 (Version 1)
Quarter: 2020Q3

REPORT INFORMATION
  Report Type: Spontaneous
  Country: AT (occurrence: AT)
  Receive Date: 20200128
  Receipt Date: 20200128
  Transmission Date: 20201105
  Serious: Yes (Life-Threatening, Other)
  Sender: FDA-Public Use
  Company Number: AT-MYLANLABS-2020M1009974

PATIENT
  Age: 26 Year
  Sex: Female

DRUGS (5)
  1. EPINEPHRINE. [Suspect]
     Active Substance: EPINEPHRINE
     Indication: HYPOTENSION
     Route: 042
  2. EPHEDRINE. [Suspect]
     Active Substance: EPHEDRINE
     Indication: BRADYCARDIA
     Route: 042
  3. ATROPINE. [Suspect]
     Active Substance: ATROPINE
     Indication: PRODUCT USED FOR UNKNOWN INDICATION
     Route: 065
  4. EPHEDRINE. [Suspect]
     Active Substance: EPHEDRINE
     Indication: HYPOTENSION
  5. EPINEPHRINE. [Suspect]
     Active Substance: EPINEPHRINE
     Indication: BRADYCARDIA

REACTIONS (7)
  - Hypertensive crisis [Unknown]
  - Maternal exposure during pregnancy [Recovered/Resolved]
  - Acute macular outer retinopathy [Not Recovered/Not Resolved]
  - Angina pectoris [Unknown]
  - Normal newborn [Recovered/Resolved]
  - Ventricular extrasystoles [Unknown]
  - Wrong product administered [Unknown]
